FAERS Safety Report 17951953 (Version 2)
Quarter: 2020Q2

REPORT INFORMATION
  Report Type: Spontaneous
  Country: CA (occurrence: CA)
  Receive Date: 20200627
  Receipt Date: 20200630
  Transmission Date: 20200714
  Serious: Yes (Other)
  Sender: FDA-Public Use
  Company Number: CA-CELLTRION INC.-2018CA025350

PATIENT

DRUGS (9)
  1. MEZAVANT [Concomitant]
     Active Substance: MESALAMINE
     Dosage: 4.8 G, 1X/DAY
     Route: 048
     Dates: start: 2011
  2. INFLECTRA [Suspect]
     Active Substance: INFLIXIMAB-DYYB
     Dosage: 700 MG, EVERY 0, 2, 6, WEEKS, THEN EVERY 8 WEEKS
     Route: 042
     Dates: start: 20190105
  3. INFLECTRA [Suspect]
     Active Substance: INFLIXIMAB-DYYB
     Dosage: 700 MG, EVERY 0, 2, 6, WEEKS, THEN EVERY 8 WEEKS
     Route: 042
     Dates: start: 20190201
  4. INFLECTRA [Suspect]
     Active Substance: INFLIXIMAB-DYYB
     Dosage: 700 MG, EVERY 0, 2, 6, WEEKS, THEN EVERY 8 WEEKS
     Route: 042
     Dates: start: 20200422
  5. INFLECTRA [Suspect]
     Active Substance: INFLIXIMAB-DYYB
     Dosage: 700 MG, EVERY 0, 2, 6, WEEKS, THEN EVERY 8 WEEKS
     Route: 042
     Dates: start: 20190911
  6. INFLECTRA [Suspect]
     Active Substance: INFLIXIMAB-DYYB
     Indication: CROHN^S DISEASE
     Dosage: 700 MG, EVERY 0, 2, 6, WEEKS, THEN EVERY 8 WEEKS
     Route: 042
     Dates: start: 20181220
  7. INFLECTRA [Suspect]
     Active Substance: INFLIXIMAB-DYYB
     Dosage: 700 MG, EVERY 0, 2, 6, WEEKS, THEN EVERY 8 WEEKS
     Route: 042
     Dates: start: 20191108
  8. INFLECTRA [Suspect]
     Active Substance: INFLIXIMAB-DYYB
     Dosage: 700 MG, EVERY 0, 2, 6, WEEKS, THEN EVERY 8 WEEKS
     Route: 042
     Dates: start: 20200226
  9. INFLECTRA [Suspect]
     Active Substance: INFLIXIMAB-DYYB
     Dosage: 700 MG, EVERY 0, 2, 6, WEEKS, THEN EVERY 8 WEEKS
     Route: 042
     Dates: start: 20200619

REACTIONS (5)
  - Product use issue [Unknown]
  - Off label use [Unknown]
  - Drug specific antibody present [Unknown]
  - Heart rate decreased [Unknown]
  - Cortical dysplasia [Unknown]

NARRATIVE: CASE EVENT DATE: 20200226
